FAERS Safety Report 7336871-9 (Version None)
Quarter: 2011Q1

REPORT INFORMATION
  Report Type: 
  Country: None (occurrence: None)
  Receive Date: 20110308
  Receipt Date: 20110228
  Transmission Date: 20110831
  Serious: No
  Sender: FDA-Public Use
  Company Number: US-BIOGENIDEC-2011BI007872

PATIENT
  Age: 39 Year
  Sex: Female

DRUGS (2)
  1. TYSABRI [Suspect]
     Indication: MULTIPLE SCLEROSIS
     Route: 042
     Dates: start: 20080208
  2. TYSABRI [Suspect]
     Route: 042
     Dates: start: 20050211

REACTIONS (4)
  - RHINORRHOEA [None]
  - PYREXIA [None]
  - PAIN [None]
  - URINARY TRACT INFECTION [None]
